FAERS Safety Report 20440457 (Version 1)
Quarter: 2022Q1

REPORT INFORMATION
  Report Type: Spontaneous
  Country: US (occurrence: None)
  Receive Date: 20220207
  Receipt Date: 20220207
  Transmission Date: 20220423
  Serious: No
  Sender: FDA-Public Use
  Company Number: None

PATIENT
  Age: 45 Year
  Sex: Female
  Weight: 67.13 kg

DRUGS (1)
  1. NALTREXONE HYDROCHLORIDE [Suspect]
     Active Substance: NALTREXONE HYDROCHLORIDE
     Indication: Alcohol use disorder
     Dosage: FREQUENCY : DAILY;?
     Route: 048
     Dates: start: 20211115, end: 20211118

REACTIONS (1)
  - Swelling [None]

NARRATIVE: CASE EVENT DATE: 20211122
